FAERS Safety Report 9393126 (Version 1)
Quarter: 2013Q3

REPORT INFORMATION
  Report Type: Spontaneous
  Country: US (occurrence: US)
  Receive Date: 20130710
  Receipt Date: 20130710
  Transmission Date: 20140515
  Serious: Yes (Hospitalization, Other)
  Sender: FDA-Public Use
  Company Number: US-ELI_LILLY_AND_COMPANY-US201306008552

PATIENT
  Age: 23 Year
  Sex: Male

DRUGS (4)
  1. ZYPREXA [Suspect]
     Indication: PSYCHOTIC DISORDER
     Dosage: 10 MG, BID
     Route: 065
     Dates: start: 2012
  2. LITHIUM [Concomitant]
     Dosage: 450 MG, BID
     Route: 065
  3. COLACE [Concomitant]
     Dosage: 100 MG, EACH EVENING
     Route: 065
  4. THORAZINE                          /00011901/ [Concomitant]
     Indication: AGITATION
     Dosage: 1 DF, PRN
     Route: 048

REACTIONS (4)
  - Acute psychosis [Unknown]
  - Hepatitis C [Unknown]
  - Alanine aminotransferase increased [Unknown]
  - Aspartate aminotransferase increased [Unknown]
